FAERS Safety Report 6557849-9 (Version None)
Quarter: 2010Q1

REPORT INFORMATION
  Report Type: 
  Country: None (occurrence: None)
  Receive Date: 20100129
  Receipt Date: 20091206
  Transmission Date: 20100710
  Serious: No
  Sender: FDA-Public Use
  Company Number: US-BAUSCH-2009BL006430

PATIENT
  Age: 69 Year
  Sex: Female

DRUGS (4)
  1. TOBRAMYCIN AND DEXAMETHASONE OPHTHALMIC SUSPENSION USP 0.3%/0.1% [Suspect]
     Indication: ANTIBIOTIC PROPHYLAXIS
     Route: 047
     Dates: start: 20091202, end: 20091202
  2. SULFACETAMIDE SODIUM [Suspect]
     Indication: ANTIBIOTIC PROPHYLAXIS
     Route: 047
     Dates: start: 20091203, end: 20091206
  3. ERYTHROMYCIN [Concomitant]
     Indication: EYELID MARGIN CRUSTING
     Route: 047
  4. LISINOPRIL [Concomitant]
     Indication: HYPERTENSION
     Route: 048
     Dates: start: 20060101

REACTIONS (4)
  - EYELID OEDEMA [None]
  - FACE OEDEMA [None]
  - FACIAL PAIN [None]
  - RASH [None]
